FAERS Safety Report 23672533 (Version 1)
Quarter: 2024Q1

REPORT INFORMATION
  Report Type: Spontaneous
  Country: PL (occurrence: PL)
  Receive Date: 20240326
  Receipt Date: 20240326
  Transmission Date: 20240410
  Serious: Yes (Death, Hospitalization, Other)
  Sender: FDA-Public Use
  Company Number: PL-002147023-NVSC2024PL053611

PATIENT
  Age: 58 Year
  Sex: Female

DRUGS (6)
  1. AZACITIDINE [Suspect]
     Active Substance: AZACITIDINE
     Indication: Product used for unknown indication
     Dosage: UNK
     Route: 065
     Dates: start: 202303, end: 202305
  2. RUXOLITINIB [Suspect]
     Active Substance: RUXOLITINIB
     Indication: Primary myelofibrosis
     Dosage: 20 MILLIGRAM, BID, (2X 10MG / DAY)
     Route: 065
     Dates: end: 202207
  3. RUXOLITINIB [Suspect]
     Active Substance: RUXOLITINIB
     Dosage: 15 MILLIGRAM, BID, (2X 15MG / DAY)
     Route: 065
     Dates: start: 202201
  4. RUXOLITINIB [Suspect]
     Active Substance: RUXOLITINIB
     Dosage: 5 MILLIGRAM, BID (2X 5MG / DAY)
     Route: 065
  5. RUXOLITINIB [Suspect]
     Active Substance: RUXOLITINIB
     Dosage: UNK
     Route: 065
     Dates: start: 202303, end: 202305
  6. FEDRATINIB [Concomitant]
     Active Substance: FEDRATINIB
     Indication: Product used for unknown indication
     Dosage: 400 MILLIGRAM
     Route: 065

REACTIONS (10)
  - Post procedural complication [Fatal]
  - Pneumonia [Fatal]
  - Gastrointestinal haemorrhage [Fatal]
  - Subdural haematoma [Fatal]
  - Procedural haemorrhage [Fatal]
  - Thrombocytopenia [Unknown]
  - Neutropenia [Unknown]
  - COVID-19 [Unknown]
  - Condition aggravated [Recovering/Resolving]
  - Splenomegaly [Recovering/Resolving]
